FAERS Safety Report 4649394-2 (Version None)
Quarter: 2005Q2

REPORT INFORMATION
  Report Type: 
  Country: None (occurrence: None)
  Receive Date: 20050427
  Receipt Date: 20050210
  Transmission Date: 20051028
  Serious: Yes (Death, Life-Threatening, Hospitalization)
  Sender: FDA-Public Use
  Company Number: A01200500765

PATIENT
  Age: 45 Year
  Sex: Male

DRUGS (7)
  1. PLAVIX [Suspect]
     Indication: PERIPHERAL OCCLUSIVE DISEASE
     Dosage: 75 MG QD / 75 MG QD ORAL
     Route: 048
     Dates: start: 20020801, end: 20040101
  2. PLAVIX [Suspect]
     Indication: PERIPHERAL OCCLUSIVE DISEASE
     Dosage: 75 MG QD / 75 MG QD ORAL
     Route: 048
     Dates: start: 20040201, end: 20040905
  3. ATACAND [Concomitant]
  4. VASTAREL (TRIMETAZIDINE HYDROCHLORIDE) [Concomitant]
  5. TANAKAN (GINKGO BILOBA EXTRACT) [Concomitant]
  6. CRESTOR [Concomitant]
  7. TANGANIL (ETHANOLAMINE ACETYLLEUCINATE) [Concomitant]

REACTIONS (11)
  - CEREBRAL HAEMATOMA [None]
  - CEREBRAL HAEMORRHAGE [None]
  - COMA [None]
  - CONVULSION [None]
  - FALL [None]
  - HAEMORRHAGIC STROKE [None]
  - HEADACHE [None]
  - LOSS OF CONSCIOUSNESS [None]
  - MALAISE [None]
  - SUBDURAL HAEMATOMA [None]
  - TRAUMATIC HAEMATOMA [None]
